FAERS Safety Report 4889852-9 (Version None)
Quarter: 2006Q1

REPORT INFORMATION
  Report Type: 
  Country: None (occurrence: None)
  Receive Date: 20060124
  Receipt Date: 20051005
  Transmission Date: 20060701
  Serious: Yes (Death, Hospitalization)
  Sender: FDA-Public Use
  Company Number: US-MERCK-0510USA03475

PATIENT
  Age: 87 Year
  Sex: Female
  Weight: 59 kg

DRUGS (7)
  1. VIOXX [Suspect]
     Indication: ARTHRITIS
     Route: 048
  2. PAXIL [Concomitant]
     Route: 065
  3. METOPROLOL [Concomitant]
     Route: 065
  4. XANAX [Concomitant]
     Route: 065
  5. ZANTAC [Concomitant]
     Route: 065
  6. NORVASC [Concomitant]
     Route: 065
  7. DITROPAN [Concomitant]
     Route: 065

REACTIONS (2)
  - CARDIAC FAILURE [None]
  - DEATH [None]
